FAERS Safety Report 26168508 (Version 1)
Quarter: 2025Q4

REPORT INFORMATION
  Report Type: Spontaneous
  Country: US (occurrence: US)
  Receive Date: 20251217
  Receipt Date: 20251217
  Transmission Date: 20260118
  Serious: Yes (Other)
  Sender: SANDOZ
  Company Number: US-SANDOZ-SDZ2025US094913

PATIENT
  Sex: Female

DRUGS (1)
  1. JUBBONTI [Suspect]
     Active Substance: DENOSUMAB-BBDZ
     Indication: Osteoporosis postmenopausal
     Dosage: 60 MG
     Route: 065
     Dates: start: 20251210, end: 20251210

REACTIONS (2)
  - Chest discomfort [Recovering/Resolving]
  - Chest pain [Recovering/Resolving]

NARRATIVE: CASE EVENT DATE: 20251210
